FAERS Safety Report 15506651 (Version 1)
Quarter: 2018Q4

REPORT INFORMATION
  Report Type: Spontaneous
  Country: FR (occurrence: FR)
  Receive Date: 20181016
  Receipt Date: 20181016
  Transmission Date: 20190205
  Serious: Yes (Hospitalization)
  Sender: FDA-Public Use
  Company Number: FR-SA-2018SA285830

PATIENT
  Age: 68 Year
  Sex: Female

DRUGS (1)
  1. XYZALL [Suspect]
     Active Substance: LEVOCETIRIZINE DIHYDROCHLORIDE
     Indication: PRODUCT USED FOR UNKNOWN INDICATION
     Dosage: UNK UNK, UNK
     Route: 048

REACTIONS (1)
  - International normalised ratio abnormal [Not Recovered/Not Resolved]

NARRATIVE: CASE EVENT DATE: 201805
